FAERS Safety Report 23357800 (Version 1)
Quarter: 2024Q1

REPORT INFORMATION
  Report Type: Spontaneous
  Country: IL (occurrence: IL)
  Receive Date: 20240102
  Receipt Date: 20240102
  Transmission Date: 20240410
  Serious: Yes (Other)
  Sender: FDA-Public Use
  Company Number: IL-BAXTER-2023BAX039461

PATIENT
  Age: 31 Year
  Sex: Male

DRUGS (6)
  1. AMINO ACIDS\DEXTROSE\ELECTROLYTES NOS\SOYBEAN OIL [Suspect]
     Active Substance: AMINO ACIDS\DEXTROSE\ELECTROLYTES NOS\SOYBEAN OIL
     Dosage: AT AN UNSPECIFIED DOSE AND FREQUENCY, TPN N4E
     Route: 065
     Dates: start: 20231118
  2. LACTATED RINGERS SOLUTION [Suspect]
     Active Substance: CALCIUM CHLORIDE\POTASSIUM CHLORIDE\SODIUM CHLORIDE\SODIUM LACTATE
     Route: 065
  3. METRONIDAZOLE [Suspect]
     Active Substance: METRONIDAZOLE
     Route: 065
  4. PERFALGAN [Suspect]
     Active Substance: ACETAMINOPHEN
     Route: 065
  5. METAMIZOLE SODIUM [Suspect]
     Active Substance: METAMIZOLE SODIUM
     Route: 065
  6. ZINACEF [Suspect]
     Active Substance: CEFUROXIME SODIUM
     Route: 065

REACTIONS (3)
  - Asphyxia [Unknown]
  - Pruritus [Unknown]
  - Dyspnoea [Unknown]
